FAERS Safety Report 5039282-4 (Version None)
Quarter: 2006Q2

REPORT INFORMATION
  Report Type: 
  Country: None (occurrence: None)
  Receive Date: 20060622
  Receipt Date: 20060612
  Transmission Date: 20061013
  Serious: Yes (Other)
  Sender: FDA-Public Use
  Company Number: 2006075447

PATIENT
  Age: 55 Year
  Sex: Male
  Weight: 88.4514 kg

DRUGS (3)
  1. LIPITOR [Suspect]
     Indication: BLOOD CHOLESTEROL INCREASED
     Dosage: 20 MG (40 MG, 1/2 TAB DAILY), ORAL, 3-4 EARS AGO
     Route: 048
  2. TOPROL-XL [Concomitant]
  3. ASPIRIN [Concomitant]

REACTIONS (5)
  - ANGIOPLASTY [None]
  - ASTHENIA [None]
  - CORONARY ARTERIAL STENT INSERTION [None]
  - MYALGIA [None]
  - TENDONITIS [None]
